FAERS Safety Report 9345663 (Version 12)
Quarter: 2016Q2

REPORT INFORMATION
  Report Type: Report from Study
  Country: CA (occurrence: CA)
  Receive Date: 20130613
  Receipt Date: 20160614
  Transmission Date: 20160815
  Serious: Yes (Hospitalization, Other)
  Sender: FDA-Public Use
  Company Number: PHHY2013CA059328

PATIENT
  Age: 55 Year
  Sex: Male
  Weight: 72 kg

DRUGS (2)
  1. SANDOSTATIN LAR DEPOT [Suspect]
     Active Substance: OCTREOTIDE ACETATE
     Dosage: 60 MG, QMO
     Route: 030
  2. SANDOSTATIN LAR DEPOT [Suspect]
     Active Substance: OCTREOTIDE ACETATE
     Indication: METASTATIC CARCINOID TUMOUR
     Dosage: 30 MG, QMO
     Route: 030
     Dates: start: 20130530

REACTIONS (23)
  - Back pain [Recovering/Resolving]
  - Blood pressure increased [Unknown]
  - Oedema [Unknown]
  - Asthenia [Unknown]
  - Abdominal pain [Recovered/Resolved]
  - Abdominal discomfort [Recovered/Resolved]
  - Influenza [Unknown]
  - Crying [Unknown]
  - Pain [Unknown]
  - General physical health deterioration [Unknown]
  - Injection site pain [Unknown]
  - Fatigue [Unknown]
  - Neoplasm [Unknown]
  - Malignant neoplasm progression [Unknown]
  - Weight decreased [Unknown]
  - Abdominal lymphadenopathy [Unknown]
  - Nephrolithiasis [Unknown]
  - Discomfort [Unknown]
  - Weight increased [Unknown]
  - Underdose [Unknown]
  - Intestinal obstruction [Not Recovered/Not Resolved]
  - Abdominal pain lower [Recovering/Resolving]
  - Emotional disorder [Unknown]

NARRATIVE: CASE EVENT DATE: 20141119
